FAERS Safety Report 12472232 (Version 2)
Quarter: 2017Q1

REPORT INFORMATION
  Report Type: Spontaneous
  Country: US (occurrence: US)
  Receive Date: 20160616
  Receipt Date: 20170126
  Transmission Date: 20170428
  Serious: No
  Sender: FDA-Public Use
  Company Number: US-NOVAST LABORATORIES, LTD-US-2016NOV000008

PATIENT

DRUGS (1)
  1. LARIN 24 FE [Suspect]
     Active Substance: ETHINYL ESTRADIOL\NORETHINDRONE ACETATE
     Dosage: 1 DF, QD
     Route: 048
     Dates: start: 20160216

REACTIONS (4)
  - Diarrhoea [Recovering/Resolving]
  - Metrorrhagia [Unknown]
  - Headache [Unknown]
  - Breast tenderness [Unknown]

NARRATIVE: CASE EVENT DATE: 2016
